FAERS Safety Report 15734801 (Version 1)
Quarter: 2018Q4

REPORT INFORMATION
  Report Type: Spontaneous
  Country: JP (occurrence: JP)
  Receive Date: 20181218
  Receipt Date: 20181218
  Transmission Date: 20190205
  Serious: Yes (Other)
  Sender: FDA-Public Use
  Company Number: PHJP2018JP020747

PATIENT
  Sex: Male

DRUGS (1)
  1. REVOLADE TAB [Suspect]
     Active Substance: ELTROMBOPAG
     Indication: IMMUNE THROMBOCYTOPENIC PURPURA
     Dosage: 50 MG, QD
     Route: 048
     Dates: end: 201811

REACTIONS (4)
  - Disease progression [Unknown]
  - Neutrophil count increased [Not Recovered/Not Resolved]
  - Immune thrombocytopenic purpura [Unknown]
  - Platelet count decreased [Not Recovered/Not Resolved]

NARRATIVE: CASE EVENT DATE: 201811
